FAERS Safety Report 6109193-1 (Version None)
Quarter: 2009Q1

REPORT INFORMATION
  Report Type: 
  Country: None (occurrence: None)
  Receive Date: 20090306
  Receipt Date: 20090227
  Transmission Date: 20090719
  Serious: No
  Sender: FDA-Public Use
  Company Number: 2007JP000287

PATIENT
  Age: 7 Year
  Sex: Female
  Weight: 210 kg

DRUGS (1)
  1. PROTOPIC [Suspect]
     Indication: DERMATITIS ATOPIC
     Dosage: 0.03%, TOPICAL
     Route: 061
     Dates: start: 20060128

REACTIONS (5)
  - HEAT RASH [None]
  - IMPETIGO [None]
  - SCRATCH [None]
  - SKIN PAPILLOMA [None]
  - VIRAL INFECTION [None]
